FAERS Safety Report 8681109 (Version 6)
Quarter: 2012Q4

REPORT INFORMATION
  Report Type: 
  Country: US (occurrence: US)
  Receive Date: 20120724
  Receipt Date: 20121129
  Transmission Date: 20130627
  Serious: Yes (Life-Threatening, Hospitalization)
  Sender: FDA-Public Use
  Company Number: US-009507513-1207USA005271

PATIENT
  Age: 5 Year
  Sex: Female
  Weight: 19 kg

DRUGS (5)
  1. VORINOSTAT [Suspect]
     Indication: BRAIN STEM GLIOMA
     Dosage: 230 mg/m2/dose PO on days 1-5 weekly
     Route: 048
     Dates: start: 20120625, end: 20120708
  2. VORINOSTAT [Suspect]
     Dosage: 230 mg/m2/dose PO qd
     Route: 048
     Dates: start: 20121009, end: 20121102
  3. DECADRON [Suspect]
     Route: 048
  4. ALBUTEROL [Concomitant]
  5. ZOFRAN [Concomitant]

REACTIONS (9)
  - Haemorrhage intracranial [Recovering/Resolving]
  - Headache [Recovered/Resolved]
  - Sinus bradycardia [Recovered/Resolved]
  - Hydrocephalus [Not Recovered/Not Resolved]
  - Depressed level of consciousness [Not Recovered/Not Resolved]
  - Aphasia [Not Recovered/Not Resolved]
  - Muscle spasticity [Not Recovered/Not Resolved]
  - Decreased appetite [Not Recovered/Not Resolved]
  - Weight decreased [Not Recovered/Not Resolved]
